FAERS Safety Report 5406772-1 (Version None)
Quarter: 2007Q3

REPORT INFORMATION
  Report Type: 
  Country: None (occurrence: None)
  Receive Date: 20070807
  Receipt Date: 20070730
  Transmission Date: 20080115
  Serious: Yes (Other)
  Sender: FDA-Public Use
  Company Number: PHEH2007US10645

PATIENT
  Age: 77 Year
  Sex: Male

DRUGS (2)
  1. NORVASC [Suspect]
     Dosage: 5 MG, UNK
  2. HYDROCHLOROTHIAZIDE [Suspect]
     Indication: HYPERTENSION
     Dosage: 50 MG, UNK

REACTIONS (5)
  - ANXIETY [None]
  - ARTHRITIS [None]
  - BLOOD PRESSURE INADEQUATELY CONTROLLED [None]
  - DEPRESSION [None]
  - EYE DISORDER [None]
